FAERS Safety Report 13461586 (Version 1)
Quarter: 2017Q2

REPORT INFORMATION
  Report Type: Spontaneous
  Country: US (occurrence: US)
  Receive Date: 20170419
  Receipt Date: 20170419
  Transmission Date: 20170830
  Serious: Yes (Hospitalization)
  Sender: FDA-Public Use
  Company Number: None

PATIENT
  Age: 81 Year
  Sex: Male
  Weight: 112.95 kg

DRUGS (1)
  1. BRILINTA [Suspect]
     Active Substance: TICAGRELOR
     Route: 048
     Dates: start: 20160413

REACTIONS (9)
  - Cystitis haemorrhagic [None]
  - Acute myocardial infarction [None]
  - Bile duct stone [None]
  - Retroperitoneal haemorrhage [None]
  - Blood creatinine increased [None]
  - Complication associated with device [None]
  - Haemoglobin decreased [None]
  - Cholecystectomy [None]
  - Haemodialysis [None]

NARRATIVE: CASE EVENT DATE: 20160929
